FAERS Safety Report 9426401 (Version 1)
Quarter: 2013Q3

REPORT INFORMATION
  Report Type: Spontaneous
  Country: GB (occurrence: GB)
  Receive Date: 20130730
  Receipt Date: 20130730
  Transmission Date: 20140515
  Serious: Yes (Hospitalization)
  Sender: FDA-Public Use
  Company Number: GB-ACCORD-018721

PATIENT
  Age: 81 Year
  Sex: Female

DRUGS (6)
  1. BENDROFLUMETHIAZIDE [Concomitant]
     Route: 048
  2. IRBESARTAN [Concomitant]
     Route: 048
  3. MONTELUKAST [Suspect]
     Indication: ASTHMA
     Dosage: ONE AT NIGHT
     Route: 048
     Dates: start: 20130625, end: 20130703
  4. WARFARIN [Concomitant]
     Dosage: 1MG/3MG AS PER INR
     Route: 048
  5. SALBUTAMOL [Concomitant]
     Dosage: AS DIRECTED
     Route: 055
  6. BUDESONIDE W/FORMOTEROL FUMARATE [Concomitant]
     Dosage: 200MCG/6MCG
     Route: 055

REACTIONS (1)
  - Dyspnoea [Recovering/Resolving]
